FAERS Safety Report 9796809 (Version 1)
Quarter: 2014Q1

REPORT INFORMATION
  Report Type: Spontaneous
  Country: US (occurrence: US)
  Receive Date: 20140103
  Receipt Date: 20140103
  Transmission Date: 20141002
  Serious: No
  Sender: FDA-Public Use
  Company Number: US-PURDUE-USA-2013-0108253

PATIENT
  Sex: Female

DRUGS (7)
  1. TRAMADOL (SIMILAR TO NDA 21-745) [Suspect]
     Indication: PAIN
  2. NEXIUM                             /01479302/ [Concomitant]
     Indication: HIATUS HERNIA
  3. LYRICA [Concomitant]
     Indication: FIBROMYALGIA
  4. CELEBREX [Concomitant]
     Indication: ARTHRITIS
  5. BACLOFEN [Concomitant]
     Indication: PRODUCT USED FOR UNKNOWN INDICATION
  6. CONCERTA LP [Concomitant]
     Indication: ATTENTION DEFICIT/HYPERACTIVITY DISORDER
  7. LEXAPRO [Concomitant]
     Indication: PRODUCT USED FOR UNKNOWN INDICATION

REACTIONS (1)
  - Tremor [Unknown]
